FAERS Safety Report 5955900-8 (Version None)
Quarter: 2008Q4

REPORT INFORMATION
  Report Type: 
  Country: None (occurrence: None)
  Receive Date: 20081117
  Receipt Date: 20081111
  Transmission Date: 20090506
  Serious: Yes (Other)
  Sender: FDA-Public Use
  Company Number: AU-MERCK-0810AUS00089

PATIENT
  Age: 57 Year
  Sex: Male
  Weight: 97 kg

DRUGS (6)
  1. JANUVIA [Suspect]
     Indication: DIABETES MELLITUS
     Route: 048
     Dates: start: 20080904
  2. METFORMIN HYDROCHLORIDE [Concomitant]
     Route: 065
     Dates: start: 20070101
  3. GLICLAZIDE [Concomitant]
     Route: 065
     Dates: end: 20080901
  4. ATORVASTATIN CALCIUM [Concomitant]
     Route: 065
     Dates: start: 20070101
  5. RAMIPRIL [Concomitant]
     Route: 065
     Dates: start: 20080408
  6. ESOMEPRAZOLE MAGNESIUM [Concomitant]
     Route: 065
     Dates: start: 20080422

REACTIONS (1)
  - BLOOD GLUCOSE INCREASED [None]
